FAERS Safety Report 5061827-9 (Version None)
Quarter: 2006Q3

REPORT INFORMATION
  Report Type: 
  Country: None (occurrence: None)
  Receive Date: 20060720
  Receipt Date: 20060720
  Transmission Date: 20061208
  Serious: Yes (Death)
  Sender: FDA-Public Use
  Company Number: None

PATIENT
  Age: 84 Year
  Sex: Male
  Weight: 69.8539 kg

DRUGS (2)
  1. METFORMIN [Suspect]
     Indication: DIABETES MELLITUS
     Dosage: 500 MG BID DECREASE
     Dates: start: 20060119, end: 20060514
  2. METFORMIN [Suspect]
     Indication: DIABETES MELLITUS
     Dosage: 500 MG BID DECREASE
     Dates: start: 19990101

REACTIONS (5)
  - ACIDOSIS [None]
  - ASTHENIA [None]
  - CARBON DIOXIDE DECREASED [None]
  - DIARRHOEA [None]
  - DIZZINESS [None]
